FAERS Safety Report 20685839 (Version 1)
Quarter: 2022Q2

REPORT INFORMATION
  Report Type: Spontaneous
  Country: US (occurrence: US)
  Receive Date: 20220407
  Receipt Date: 20220407
  Transmission Date: 20220721
  Serious: Yes (Other)
  Sender: FDA-Public Use
  Company Number: US-PFIZER INC-202200523716

PATIENT
  Age: 34 Year
  Sex: Male
  Weight: 61.23 kg

DRUGS (1)
  1. PAXLOVID [Suspect]
     Active Substance: NIRMATRELVIR\RITONAVIR
     Indication: COVID-19 treatment
     Dosage: UNK

REACTIONS (5)
  - Gastric haemorrhage [Unknown]
  - Diarrhoea [Unknown]
  - Abdominal pain upper [Unknown]
  - Illness [Unknown]
  - Gastrointestinal disorder [Unknown]
